FAERS Safety Report 14415366 (Version 1)
Quarter: 2018Q1

REPORT INFORMATION
  Report Type: Spontaneous
  Country: SE (occurrence: SE)
  Receive Date: 20180121
  Receipt Date: 20180121
  Transmission Date: 20180509
  Serious: Yes (Other)
  Sender: FDA-Public Use
  Company Number: PHHY2016SE018393

PATIENT
  Sex: Female
  Weight: 10.56 kg

DRUGS (1)
  1. GILENYA [Suspect]
     Active Substance: FINGOLIMOD HYDROCHLORIDE
     Indication: RELAPSING-REMITTING MULTIPLE SCLEROSIS
     Dosage: UNK
     Route: 064

REACTIONS (12)
  - Pyrexia [Recovered/Resolved]
  - Viral upper respiratory tract infection [Unknown]
  - Rhinorrhoea [Unknown]
  - Abnormal faeces [Unknown]
  - Nasopharyngitis [Unknown]
  - Dry skin [Unknown]
  - Constipation [Unknown]
  - Sleep disorder [Unknown]
  - Nasal congestion [Unknown]
  - Cough [Not Recovered/Not Resolved]
  - Urticaria [Unknown]
  - Diarrhoea [Unknown]

NARRATIVE: CASE EVENT DATE: 201510
